FAERS Safety Report 7378582-X (Version None)
Quarter: 2011Q1

REPORT INFORMATION
  Report Type: 
  Country: None (occurrence: None)
  Receive Date: 20110328
  Receipt Date: 20110310
  Transmission Date: 20110831
  Serious: Yes (Hospitalization)
  Sender: FDA-Public Use
  Company Number: SE-ASTRAZENECA-2011SE13400

PATIENT
  Age: 77 Year
  Sex: Male

DRUGS (2)
  1. SENDOXAN [Suspect]
     Indication: PROSTATE CANCER
     Dosage: CC
     Dates: end: 20110201
  2. CASODEX [Suspect]
     Indication: PROSTATE CANCER
     Route: 048
     Dates: end: 20110201

REACTIONS (2)
  - ANAEMIA [None]
  - LEUKOPENIA [None]
